FAERS Safety Report 21290429 (Version 4)
Quarter: 2022Q4

REPORT INFORMATION
  Report Type: Report from Study
  Country: US (occurrence: US)
  Receive Date: 20220902
  Receipt Date: 20221221
  Transmission Date: 20230113
  Serious: No
  Sender: FDA-Public Use
  Company Number: US-NOVARTISTESTPH-NVSC2022US197831

PATIENT
  Sex: Female

DRUGS (2)
  1. PIQRAY [Suspect]
     Active Substance: ALPELISIB
     Indication: Product used for unknown indication
     Dosage: 50 MG
     Route: 048
  2. PIQRAY [Suspect]
     Active Substance: ALPELISIB
     Dosage: 100 MG
     Route: 048

REACTIONS (8)
  - Feeling abnormal [Unknown]
  - Dizziness [Unknown]
  - Thirst [Unknown]
  - Asthenia [Unknown]
  - Fatigue [Unknown]
  - Dry mouth [Unknown]
  - Blood glucose increased [Unknown]
  - Drug intolerance [Unknown]
